FAERS Safety Report 6394747-8 (Version None)
Quarter: 2009Q4

REPORT INFORMATION
  Report Type: 
  Country: None (occurrence: None)
  Receive Date: 20091009
  Receipt Date: 20090824
  Transmission Date: 20100525
  Serious: No
  Sender: FDA-Public Use
  Company Number: US-BAYER-200930404NA

PATIENT
  Sex: Female

DRUGS (2)
  1. LEVLEN 28 [Suspect]
     Indication: MENSTRUAL CYCLE MANAGEMENT
  2. LEVORA 0.15/30-28 [Concomitant]
     Dosage: FEELS BLOATED AND JUST AWFUL AND GETS PERIOD FOR A FEW DAYS

REACTIONS (1)
  - AMENORRHOEA [None]
